FAERS Safety Report 23838833 (Version 1)
Quarter: 2024Q2

REPORT INFORMATION
  Report Type: Report from Study
  Country: US (occurrence: US)
  Receive Date: 20240509
  Receipt Date: 20240509
  Transmission Date: 20240715
  Serious: Yes (Hospitalization)
  Sender: FDA-Public Use
  Company Number: US-ARGENX-2024-ARGX-US002899

PATIENT

DRUGS (1)
  1. VYVGART [Suspect]
     Active Substance: EFGARTIGIMOD ALFA-FCAB
     Indication: Myasthenia gravis
     Dosage: 1100 MG, 1/WEEK FOR 4 WEEKS (STRENGTH: 400MG/20ML)
     Route: 042
     Dates: start: 202304

REACTIONS (2)
  - Hospitalisation [Unknown]
  - Weight decreased [Unknown]
